FAERS Safety Report 8175836-4 (Version None)
Quarter: 2012Q1

REPORT INFORMATION
  Report Type: 
  Country: None (occurrence: None)
  Receive Date: 20120301
  Receipt Date: 20120224
  Transmission Date: 20120608
  Serious: Yes (Hospitalization, Other)
  Sender: FDA-Public Use
  Company Number: US-BAYER-2012-019272

PATIENT
  Age: 41 Year
  Sex: Male

DRUGS (1)
  1. CIPRO [Suspect]
     Indication: RESPIRATORY TRACT INFECTION
     Dosage: 500 MG, QD
     Route: 048
     Dates: start: 20120203, end: 20120204

REACTIONS (4)
  - RENAL FAILURE ACUTE [None]
  - VOMITING [None]
  - TREMOR [None]
  - COORDINATION ABNORMAL [None]
